FAERS Safety Report 13632782 (Version 1)
Quarter: 2017Q2

REPORT INFORMATION
  Report Type: Spontaneous
  Country: US (occurrence: US)
  Receive Date: 20170531
  Receipt Date: 20170531
  Transmission Date: 20170830
  Serious: No
  Sender: FDA-Public Use
  Company Number: US-ASTELLAS-1479405

PATIENT
  Sex: Female

DRUGS (6)
  1. LEVOTHYROXINE. [Concomitant]
     Active Substance: LEVOTHYROXINE
  2. TARCEVA [Suspect]
     Active Substance: ERLOTINIB HYDROCHLORIDE
     Route: 048
     Dates: start: 20140928
  3. DOXYCYCLINE MONOHYDRATE [Concomitant]
     Active Substance: DOXYCYCLINE
  4. SYNTHROID [Concomitant]
     Active Substance: LEVOTHYROXINE SODIUM
  5. TARCEVA [Suspect]
     Active Substance: ERLOTINIB HYDROCHLORIDE
     Indication: LUNG NEOPLASM MALIGNANT
     Route: 048
     Dates: start: 20140928
  6. PROCHLORPERAZINE. [Concomitant]
     Active Substance: PROCHLORPERAZINE

REACTIONS (23)
  - Nausea [Unknown]
  - Pain in extremity [Unknown]
  - Hypogeusia [Unknown]
  - Decreased appetite [Unknown]
  - Thyroid disorder [Unknown]
  - Blood thyroid stimulating hormone increased [Unknown]
  - Hair colour changes [Unknown]
  - Ingrowing nail [Unknown]
  - Drug ineffective [Unknown]
  - Hair growth abnormal [Unknown]
  - Nail disorder [Unknown]
  - Dysgeusia [Unknown]
  - Diarrhoea [Unknown]
  - Asthenia [Unknown]
  - Growth of eyelashes [Unknown]
  - Ageusia [Unknown]
  - Dyspepsia [Unknown]
  - Onychoclasis [Unknown]
  - Rash [Unknown]
  - Fungal skin infection [Unknown]
  - Alopecia [Unknown]
  - Fatigue [Unknown]
  - Temperature intolerance [Unknown]
